FAERS Safety Report 24339487 (Version 2)
Quarter: 2024Q3

REPORT INFORMATION
  Report Type: Spontaneous
  Country: US (occurrence: US)
  Receive Date: 20240919
  Receipt Date: 20240927
  Transmission Date: 20241016
  Serious: No
  Sender: MYLAN
  Company Number: US-MYLANLABS-2024M1084667

PATIENT
  Sex: Female
  Weight: 65.77 kg

DRUGS (1)
  1. TYRVAYA [Suspect]
     Active Substance: VARENICLINE TARTRATE
     Indication: Dry eye
     Dosage: 0.03 MILLIGRAM, BID (1 DROP EACH NOSTRIL 2 X A DAY)
     Route: 045
     Dates: start: 2023, end: 20240904

REACTIONS (4)
  - Erythema [Recovering/Resolving]
  - Skin irritation [Recovering/Resolving]
  - Nasal discomfort [Recovering/Resolving]
  - Blister [Recovering/Resolving]
